FAERS Safety Report 9468107 (Version 1)
Quarter: 2013Q3

REPORT INFORMATION
  Report Type: Report from Study
  Country: US (occurrence: US)
  Receive Date: 20130821
  Receipt Date: 20130821
  Transmission Date: 20140515
  Serious: Yes (Other)
  Sender: FDA-Public Use
  Company Number: US-PFIZER INC-2013235602

PATIENT
  Age: 14 Year
  Sex: Male

DRUGS (4)
  1. CISPLATIN [Suspect]
     Indication: GERM CELL CANCER
     Dosage: 20MG/M2/DAY X 5 DAYS
  2. ETOPOSIDE [Suspect]
     Indication: GERM CELL CANCER
     Dosage: 100MG/M2/DAY X 5 DAYS
  3. CYCLOPHOSPHAMIDE [Suspect]
     Indication: GERM CELL CANCER
     Dosage: 1.8 G/M2, CYCLIC
  4. BLEOMYCIN [Suspect]
     Indication: GERM CELL CANCER
     Dosage: 15 MG/M2 ON DAY 1; CYCLIC

REACTIONS (1)
  - Hyperglycaemia [Unknown]
